FAERS Safety Report 13471661 (Version 5)
Quarter: 2017Q4

REPORT INFORMATION
  Report Type: Spontaneous
  Country: US (occurrence: US)
  Receive Date: 20170424
  Receipt Date: 20171215
  Transmission Date: 20180320
  Serious: No
  Sender: FDA-Public Use
  Company Number: US-PFIZER INC-2017172906

PATIENT
  Age: 49 Year
  Sex: Female

DRUGS (1)
  1. IBRANCE [Suspect]
     Active Substance: PALBOCICLIB
     Indication: BONE CANCER
     Dosage: 100 MG, CYCLIC (QD X21 D THEN 7 D OFF)
     Route: 048
     Dates: start: 201604

REACTIONS (6)
  - Intentional dose omission [Unknown]
  - Arthralgia [Unknown]
  - Burning sensation [Unknown]
  - Alopecia [Unknown]
  - Amnesia [Unknown]
  - Product use in unapproved indication [Unknown]

NARRATIVE: CASE EVENT DATE: 201604
